FAERS Safety Report 7716200-9 (Version None)
Quarter: 2011Q3

REPORT INFORMATION
  Report Type: 
  Country: None (occurrence: None)
  Receive Date: 20110822
  Receipt Date: 20110810
  Transmission Date: 20111222
  Serious: Yes (Other)
  Sender: FDA-Public Use
  Company Number: AUR-APL-2011-04694

PATIENT
  Sex: Female
  Weight: 70 kg

DRUGS (15)
  1. FEMARA [Suspect]
     Indication: BREAST CANCER
     Dosage: 5 MG (2.5 MG, 2 IN 1 D), ORAL
     Route: 048
     Dates: start: 20100416
  2. ADCAL-D3 (LEKOVIT CA) [Concomitant]
  3. AIROMIR (SALBUTAMOL) [Concomitant]
  4. NITROGLYCERIN [Concomitant]
  5. SPIRONOLACTONE [Concomitant]
  6. BISOPROLOL FUMARATE [Concomitant]
  7. DIGOXIN [Concomitant]
  8. PRAVASTATIN [Concomitant]
  9. ALENDRONATE SODIUM [Suspect]
     Indication: PRODUCT USED FOR UNKNOWN INDICATION
     Dosage: 70 MG), UNKNOWN
  10. NOVOMIX (INSULIN ASPART) [Concomitant]
  11. VALSARTAN [Concomitant]
  12. WARFARIN SODIUM [Concomitant]
  13. CO-CODAMOL (PANADEINE CO) [Concomitant]
  14. FUROSEMIDE [Concomitant]
  15. LACTULOSE [Concomitant]

REACTIONS (12)
  - OEDEMA PERIPHERAL [None]
  - LIVER DISORDER [None]
  - BLEPHARITIS [None]
  - RENAL DISORDER [None]
  - IRRITABILITY [None]
  - MUSCULOSKELETAL PAIN [None]
  - CARDIAC FAILURE [None]
  - DIABETES MELLITUS [None]
  - AMNESIA [None]
  - MACULAR DEGENERATION [None]
  - NIGHT SWEATS [None]
  - ARTHRALGIA [None]
